FAERS Safety Report 15884640 (Version 2)
Quarter: 2019Q1

REPORT INFORMATION
  Report Type: Spontaneous
  Country: US (occurrence: US)
  Receive Date: 20190129
  Receipt Date: 20190207
  Transmission Date: 20190417
  Serious: Yes (Hospitalization, Other)
  Sender: FDA-Public Use
  Company Number: US-PFIZER INC-2019036405

PATIENT
  Age: 41 Year
  Sex: Female

DRUGS (6)
  1. TACROLIMUS. [Concomitant]
     Active Substance: TACROLIMUS
     Indication: IMMUNOSUPPRESSANT DRUG THERAPY
     Dosage: 3 MG, 1X/DAY (EVERY MORNING)
  2. TACROLIMUS. [Concomitant]
     Active Substance: TACROLIMUS
     Dosage: 4 MG, 1X/DAY (EVERY NIGHT)
  3. PREDNISONE. [Concomitant]
     Active Substance: PREDNISONE
     Dosage: 5 MG, DAILY
  4. PREDNISONE. [Concomitant]
     Active Substance: PREDNISONE
     Indication: IMMUNOSUPPRESSANT DRUG THERAPY
     Dosage: 5 MG, DAILY
  5. PREDNISONE. [Concomitant]
     Active Substance: PREDNISONE
     Dosage: 60 MG, DAILY
  6. CEFTRIAXONE SODIUM. [Suspect]
     Active Substance: CEFTRIAXONE SODIUM
     Indication: URINARY TRACT INFECTION
     Dosage: UNK
     Route: 030

REACTIONS (1)
  - Linear IgA disease [Recovered/Resolved]
